FAERS Safety Report 6771666-6 (Version None)
Quarter: 2010Q2

REPORT INFORMATION
  Report Type: 
  Country: None (occurrence: None)
  Receive Date: 20100616
  Receipt Date: 20100607
  Transmission Date: 20101027
  Serious: Yes (Hospitalization)
  Sender: FDA-Public Use
  Company Number: JP-ASTRAZENECA-2010SE25079

PATIENT
  Age: 24217 Day
  Sex: Male

DRUGS (11)
  1. CRESTOR [Suspect]
     Indication: HYPERLIPIDAEMIA
     Route: 048
     Dates: start: 20080301, end: 20100408
  2. WARFARIN SODIUM [Suspect]
     Route: 048
     Dates: end: 20100410
  3. WARFARIN SODIUM [Suspect]
     Route: 048
     Dates: start: 20100414
  4. SLOW-K [Suspect]
     Route: 048
  5. TENORMIN [Concomitant]
     Route: 048
  6. BLOPRESS [Concomitant]
     Route: 048
  7. TANATRIL [Concomitant]
     Route: 048
  8. ADALAT CC [Concomitant]
     Route: 048
  9. TAKEPRON [Concomitant]
     Route: 048
  10. NORVASC [Concomitant]
     Route: 048
  11. BAYASPIRIN [Concomitant]
     Route: 048

REACTIONS (3)
  - CHROMATURIA [None]
  - LABORATORY TEST ABNORMAL [None]
  - MUSCULAR WEAKNESS [None]
